FAERS Safety Report 20392484 (Version 2)
Quarter: 2022Q1

REPORT INFORMATION
  Report Type: Spontaneous
  Country: AR (occurrence: AR)
  Receive Date: 20220128
  Receipt Date: 20220214
  Transmission Date: 20220423
  Serious: Yes (Other)
  Sender: FDA-Public Use
  Company Number: AR-PFIZER INC-202200114226

PATIENT
  Age: 46 Year
  Sex: Female
  Weight: 66 kg

DRUGS (2)
  1. IBRANCE [Suspect]
     Active Substance: PALBOCICLIB
     Indication: Breast cancer metastatic
     Dosage: 100 MG, CYCLIC (DAILY, SCHEME 3X1)
     Dates: start: 20210331
  2. FULVESTRANT [Concomitant]
     Active Substance: FULVESTRANT
     Indication: Breast cancer metastatic
     Dosage: UNK, CYCLIC (EVERY 28 DAYS)
     Dates: start: 20210331

REACTIONS (2)
  - Blood iron decreased [Not Recovered/Not Resolved]
  - Biopsy bone [Unknown]

NARRATIVE: CASE EVENT DATE: 20220101
